FAERS Safety Report 9905553 (Version 1)
Quarter: 2014Q1

REPORT INFORMATION
  Report Type: Spontaneous
  Country: FR (occurrence: None)
  Receive Date: 20140211
  Receipt Date: 20140211
  Transmission Date: 20141002
  Serious: Yes (Other)
  Sender: FDA-Public Use
  Company Number: 2014000037

PATIENT
  Age: 59 Year
  Sex: Female

DRUGS (1)
  1. ACEON (PERINDOPRIL ERBUMINE) TABLET [Suspect]
     Indication: HYPERTENSION
     Route: 048
     Dates: start: 201310, end: 20131223

REACTIONS (10)
  - Tinnitus [None]
  - Muscle spasms [None]
  - Hyperhidrosis [None]
  - Dyspnoea [None]
  - Palpitations [None]
  - Nausea [None]
  - Chest pain [None]
  - Fatigue [None]
  - Cough [None]
  - Anxiety [None]
